FAERS Safety Report 7338289-1 (Version None)
Quarter: 2011Q1

REPORT INFORMATION
  Report Type: 
  Country: None (occurrence: None)
  Receive Date: 20110224
  Receipt Date: 20110210
  Transmission Date: 20110831
  Serious: Yes (Hospitalization)
  Sender: FDA-Public Use
  Company Number: 2011MA000614

PATIENT
  Age: 49 Year
  Sex: Male

DRUGS (5)
  1. AMANTADINE HCL [Concomitant]
  2. ROPINIROLE [Concomitant]
  3. SELEGILINE [Concomitant]
  4. CARBIDOPA AND LEVODOPA [Suspect]
     Indication: PARKINSON'S DISEASE
     Dosage: PO
     Route: 048
  5. ENTACAPONE [Concomitant]

REACTIONS (22)
  - HYPERSEXUALITY [None]
  - ECONOMIC PROBLEM [None]
  - POVERTY [None]
  - DISINHIBITION [None]
  - PATHOLOGICAL GAMBLING [None]
  - SUSPICIOUSNESS [None]
  - FAMILY STRESS [None]
  - INCORRECT DOSE ADMINISTERED [None]
  - EXCESSIVE MASTURBATION [None]
  - MOTOR DYSFUNCTION [None]
  - DEPRESSED MOOD [None]
  - MARITAL PROBLEM [None]
  - AGGRESSION [None]
  - ANXIETY [None]
  - DELUSION [None]
  - EXHIBITIONISM [None]
  - DRUG ABUSE [None]
  - SOCIAL PROBLEM [None]
  - FEAR [None]
  - PERSECUTORY DELUSION [None]
  - PSYCHOTIC DISORDER [None]
  - ABNORMAL BEHAVIOUR [None]
